FAERS Safety Report 5884765-8 (Version None)
Quarter: 2008Q3

REPORT INFORMATION
  Report Type: 
  Country: None (occurrence: None)
  Receive Date: 20080915
  Receipt Date: 20080915
  Transmission Date: 20090109
  Serious: Yes (Other)
  Sender: FDA-Public Use
  Company Number: None

PATIENT
  Age: 28 Year
  Sex: Female
  Weight: 63.5036 kg

DRUGS (1)
  1. CHILDREN'S COLD MEDICINE EQUATE / WAL-MART [Suspect]
     Indication: NASOPHARYNGITIS
     Dosage: 1 TEASPOON ONCE PO
     Route: 048
     Dates: start: 20080812, end: 20080812

REACTIONS (4)
  - DIZZINESS [None]
  - DRUG EXPOSURE DURING PREGNANCY [None]
  - FEELING ABNORMAL [None]
  - HEART RATE INCREASED [None]
